FAERS Safety Report 17513629 (Version 10)
Quarter: 2023Q2

REPORT INFORMATION
  Report Type: Report from Study
  Country: US (occurrence: US)
  Receive Date: 20200306
  Receipt Date: 20230522
  Transmission Date: 20230722
  Serious: Yes (Hospitalization, Other)
  Sender: FDA-Public Use
  Company Number: US-JAZZ-2020-US-003284

PATIENT
  Age: 76 Year
  Sex: Female

DRUGS (46)
  1. XYREM [Suspect]
     Active Substance: SODIUM OXYBATE
     Indication: Narcolepsy
     Dosage: 2.25 GRAM, BID
     Route: 048
     Dates: start: 200301, end: 200311
  2. XYREM [Suspect]
     Active Substance: SODIUM OXYBATE
     Indication: Cataplexy
     Dosage: DOSE ADJUSTMENT
     Route: 048
     Dates: start: 200311, end: 201710
  3. XYREM [Suspect]
     Active Substance: SODIUM OXYBATE
     Indication: Somnolence
     Dosage: 3 GRAM, FIRST DOSE
     Route: 048
     Dates: start: 201710
  4. XYREM [Suspect]
     Active Substance: SODIUM OXYBATE
     Dosage: 3.5 GRAM,SECOND DOSE
     Route: 048
     Dates: start: 201710
  5. XYREM [Suspect]
     Active Substance: SODIUM OXYBATE
     Dosage: 3.25 GRAM, SECOND DOSE
     Route: 048
  6. XYREM [Suspect]
     Active Substance: SODIUM OXYBATE
     Dosage: 1.5 GRAM, FIRST DOSE
     Route: 048
     Dates: start: 2021, end: 2021
  7. XYREM [Suspect]
     Active Substance: SODIUM OXYBATE
     Dosage: 4 GRAM, SECOND DOSE
     Route: 048
     Dates: start: 2021, end: 2021
  8. XYREM [Suspect]
     Active Substance: SODIUM OXYBATE
     Dosage: 1 GRAM, FIRST DOSE
     Route: 048
     Dates: start: 2021
  9. XYREM [Suspect]
     Active Substance: SODIUM OXYBATE
     Dosage: 4.5 GRAM, SECOND DOSE
     Route: 048
     Dates: start: 2021
  10. ALBUTEROL [Suspect]
     Active Substance: ALBUTEROL
     Indication: Product used for unknown indication
  11. VANCOMYCIN [Suspect]
     Active Substance: VANCOMYCIN
     Indication: Product used for unknown indication
  12. PLAVIX [Concomitant]
     Active Substance: CLOPIDOGREL BISULFATE
     Indication: Product used for unknown indication
     Dates: start: 202002
  13. TORSEMIDE [Concomitant]
     Active Substance: TORSEMIDE
     Indication: Product used for unknown indication
     Dates: start: 202002
  14. SPIRONOLACTONE [Concomitant]
     Active Substance: SPIRONOLACTONE
     Indication: Product used for unknown indication
     Dates: start: 201905
  15. EDARBYCLOR [Concomitant]
     Active Substance: AZILSARTAN KAMEDOXOMIL\CHLORTHALIDONE
     Indication: Product used for unknown indication
     Dates: start: 201905
  16. OMEPRAZOLE [Concomitant]
     Active Substance: OMEPRAZOLE
     Indication: Product used for unknown indication
     Dates: start: 201806, end: 202001
  17. PREDNISONE [Concomitant]
     Active Substance: PREDNISONE
     Indication: Product used for unknown indication
     Dates: start: 20150225, end: 20150301
  18. ZITHROMAX [Concomitant]
     Active Substance: AZITHROMYCIN DIHYDRATE
     Indication: Product used for unknown indication
     Dates: start: 20150225, end: 20150301
  19. PERCOCET [Concomitant]
     Active Substance: ACETAMINOPHEN\OXYCODONE HYDROCHLORIDE
     Indication: Product used for unknown indication
     Dates: start: 20121004, end: 201607
  20. RANITIDINE [Concomitant]
     Active Substance: RANITIDINE
     Indication: Product used for unknown indication
     Dates: start: 20120731, end: 201607
  21. ADVAIR HFA [Concomitant]
     Active Substance: FLUTICASONE PROPIONATE\SALMETEROL XINAFOATE
     Indication: Product used for unknown indication
     Dosage: 100-50 DISKUS
  22. ADVAIR HFA [Concomitant]
     Active Substance: FLUTICASONE PROPIONATE\SALMETEROL XINAFOATE
     Dosage: 100-50 DISKUS
  23. ASPIRIN [Concomitant]
     Active Substance: ASPIRIN
     Indication: Product used for unknown indication
  24. AVELOX [Concomitant]
     Active Substance: MOXIFLOXACIN HYDROCHLORIDE
     Indication: Product used for unknown indication
     Dosage: 400/250 MG/ML
     Dates: end: 201607
  25. AVELOX [Concomitant]
     Active Substance: MOXIFLOXACIN HYDROCHLORIDE
     Dosage: 400/250 MG/ML
     Dates: end: 201607
  26. CALTRATE WITH VITAMIN D [Concomitant]
     Active Substance: CALCIUM CARBONATE\CHOLECALCIFEROL
     Indication: Product used for unknown indication
     Dates: end: 201607
  27. CALTRATE WITH VITAMIN D [Concomitant]
     Active Substance: CALCIUM CARBONATE\CHOLECALCIFEROL
     Dates: end: 201607
  28. CANASA [Concomitant]
     Active Substance: MESALAMINE
     Indication: Product used for unknown indication
     Dates: end: 201607
  29. CANASA [Concomitant]
     Active Substance: MESALAMINE
     Dates: end: 201607
  30. DILTIAZEM HYDROCHLORIDE [Concomitant]
     Active Substance: DILTIAZEM HYDROCHLORIDE
     Indication: Product used for unknown indication
  31. DIOVAN HCT [Concomitant]
     Active Substance: HYDROCHLOROTHIAZIDE\VALSARTAN
     Indication: Product used for unknown indication
     Dates: end: 202001
  32. DIOVAN HCT [Concomitant]
     Active Substance: HYDROCHLOROTHIAZIDE\VALSARTAN
     Dates: end: 202001
  33. DOXAZOSIN MESYLATE [Concomitant]
     Active Substance: DOXAZOSIN MESYLATE
     Indication: Product used for unknown indication
  34. FIBERCON [Concomitant]
     Active Substance: CALCIUM POLYCARBOPHIL
     Indication: Product used for unknown indication
     Dates: end: 201607
  35. FIBERCON [Concomitant]
     Active Substance: CALCIUM POLYCARBOPHIL
     Dates: end: 201607
  36. FLONASE ALLERGY RELIEF [Concomitant]
     Active Substance: FLUTICASONE PROPIONATE
     Indication: Product used for unknown indication
  37. IMODIUM A-D [Concomitant]
     Active Substance: LOPERAMIDE HYDROCHLORIDE
     Indication: Product used for unknown indication
  38. MYRBETRIQ [Concomitant]
     Active Substance: MIRABEGRON
     Indication: Product used for unknown indication
     Dates: end: 201512
  39. MYRBETRIQ [Concomitant]
     Active Substance: MIRABEGRON
     Dates: end: 201512
  40. PRAVASTATIN SODIUM [Concomitant]
     Active Substance: PRAVASTATIN SODIUM
     Indication: Product used for unknown indication
  41. PROVIGIL [Concomitant]
     Active Substance: MODAFINIL
     Indication: Product used for unknown indication
  42. SPIRIVA [Concomitant]
     Active Substance: TIOTROPIUM BROMIDE MONOHYDRATE
     Indication: Product used for unknown indication
  43. VALSARTAN [Concomitant]
     Active Substance: VALSARTAN
     Indication: Product used for unknown indication
     Dates: end: 201905
  44. VALSARTAN [Concomitant]
     Active Substance: VALSARTAN
     Dates: end: 201905
  45. AMLODIPINE BESYLATE [Concomitant]
     Active Substance: AMLODIPINE BESYLATE
     Indication: Product used for unknown indication
     Dosage: UNK
     Dates: start: 20211101
  46. CARVEDILOL [Concomitant]
     Active Substance: CARVEDILOL
     Dosage: UNK
     Dates: start: 20211101

REACTIONS (10)
  - Cardiac failure congestive [Unknown]
  - Vascular occlusion [Unknown]
  - Carotid artery disease [Unknown]
  - Hospitalisation [Unknown]
  - Gastrooesophageal reflux disease [Recovered/Resolved]
  - Diarrhoea [Unknown]
  - Nightmare [Unknown]
  - Somnambulism [Recovered/Resolved]
  - Illness [Unknown]
  - Drug hypersensitivity [Unknown]

NARRATIVE: CASE EVENT DATE: 20200201
